FAERS Safety Report 5453970-7 (Version None)
Quarter: 2007Q3

REPORT INFORMATION
  Report Type: 
  Country: None (occurrence: None)
  Receive Date: 20070917
  Receipt Date: 20070228
  Transmission Date: 20080115
  Serious: Yes (Hospitalization)
  Sender: FDA-Public Use
  Company Number: US-ASTRAZENECA-2006UW03031

PATIENT
  Sex: Female
  Weight: 118.2 kg

DRUGS (4)
  1. SEROQUEL [Suspect]
     Indication: BIPOLAR DISORDER
     Route: 048
     Dates: start: 20001001, end: 20020212
  2. SEROQUEL [Suspect]
     Indication: SCHIZOPHRENIA
     Route: 048
     Dates: start: 20001001, end: 20020212
  3. RISPERDAL [Concomitant]
     Dates: start: 20000201, end: 20000701
  4. ZYPREXA [Concomitant]
     Dates: start: 20031101, end: 20050101

REACTIONS (5)
  - DIABETES MELLITUS [None]
  - HYPERGLYCAEMIA [None]
  - MALAISE [None]
  - PAIN IN EXTREMITY [None]
  - WEIGHT INCREASED [None]
